FAERS Safety Report 6310267-0 (Version None)
Quarter: 2009Q3

REPORT INFORMATION
  Report Type: 
  Country: None (occurrence: None)
  Receive Date: 20090814
  Receipt Date: 20090807
  Transmission Date: 20100115
  Serious: Yes (Hospitalization)
  Sender: FDA-Public Use
  Company Number: US-SANOFI-SYNTHELABO-A03200903485

PATIENT
  Sex: Male
  Weight: 96.2 kg

DRUGS (1)
  1. ELOXATIN [Suspect]
     Indication: DRUG USE FOR UNKNOWN INDICATION
     Route: 042
     Dates: start: 20061225, end: 20061225

REACTIONS (7)
  - ABASIA [None]
  - ASTHENIA [None]
  - BLOOD COUNT ABNORMAL [None]
  - DEPRESSED LEVEL OF CONSCIOUSNESS [None]
  - DIARRHOEA [None]
  - NEUROPATHY PERIPHERAL [None]
  - WEIGHT DECREASED [None]
